FAERS Safety Report 19811009 (Version 3)
Quarter: 2022Q1

REPORT INFORMATION
  Report Type: Report from Study
  Country: US (occurrence: US)
  Receive Date: 20210910
  Receipt Date: 20220224
  Transmission Date: 20220423
  Serious: Yes (Hospitalization, Other)
  Sender: FDA-Public Use
  Company Number: US-ABBVIE-21K-163-4028967-00

PATIENT
  Age: 73 Year
  Sex: Male

DRUGS (3)
  1. IMBRUVICA [Suspect]
     Active Substance: IBRUTINIB
     Indication: Mantle cell lymphoma
     Route: 048
  2. IMBRUVICA [Suspect]
     Active Substance: IBRUTINIB
     Route: 048
     Dates: start: 20201106, end: 20201108
  3. IMBRUVICA [Suspect]
     Active Substance: IBRUTINIB
     Route: 048
     Dates: start: 20201116

REACTIONS (19)
  - Inguinal hernia [Unknown]
  - Post procedural complication [Unknown]
  - Guillain-Barre syndrome [Unknown]
  - Chronic kidney disease [Unknown]
  - COVID-19 [Not Recovered/Not Resolved]
  - Lymphoma [Unknown]
  - Pollakiuria [Recovered/Resolved]
  - Hypophagia [Recovered/Resolved]
  - Balance disorder [Unknown]
  - Blood creatinine abnormal [Unknown]
  - Chest X-ray abnormal [Unknown]
  - Foot fracture [Unknown]
  - Tendon disorder [Unknown]
  - Decreased appetite [Not Recovered/Not Resolved]
  - Neuropathy peripheral [Not Recovered/Not Resolved]
  - Insomnia [Recovered/Resolved]
  - Fall [Not Recovered/Not Resolved]
  - Pneumonitis [Not Recovered/Not Resolved]
  - Oedema peripheral [Unknown]

NARRATIVE: CASE EVENT DATE: 20201101
